FAERS Safety Report 10058611 (Version 1)
Quarter: 2014Q2

REPORT INFORMATION
  Report Type: Spontaneous
  Country: GB (occurrence: None)
  Receive Date: 20140402
  Receipt Date: 20140402
  Transmission Date: 20141212
  Serious: Yes (Hospitalization)
  Sender: FDA-Public Use
  Company Number: FK201401075

PATIENT
  Age: 41 Year
  Sex: Female

DRUGS (3)
  1. GEMCITABINE [Suspect]
     Indication: LUNG ADENOCARCINOMA
     Dosage: 7 CYCLES
  2. CISPLATIN [Suspect]
     Indication: LUNG ADENOCARCINOMA
     Dosage: 7 CYCLES
  3. BEVACIZUMAB [Suspect]
     Indication: LUNG ADENOCARCINOMA
     Dosage: 7 CYCLES

REACTIONS (2)
  - Posterior reversible encephalopathy syndrome [None]
  - Drug ineffective [None]
